FAERS Safety Report 5493552-4 (Version None)
Quarter: 2007Q4

REPORT INFORMATION
  Report Type: 
  Country: None (occurrence: None)
  Receive Date: 20071023
  Receipt Date: 20071015
  Transmission Date: 20080405
  Serious: Yes (Hospitalization, Disabling)
  Sender: FDA-Public Use
  Company Number: US-ELI_LILLY_AND_COMPANY-US200709003361

PATIENT
  Sex: Male

DRUGS (3)
  1. HUMULIN 70/30 [Suspect]
     Dates: start: 20020101
  2. HUMULIN 70/30 [Suspect]
     Dates: start: 20020101
  3. HUMULIN 70/30 [Suspect]
     Dates: start: 20020101

REACTIONS (1)
  - CEREBRAL INFARCTION [None]
